FAERS Safety Report 16873627 (Version 8)
Quarter: 2020Q3

REPORT INFORMATION
  Report Type: Report from Study
  Country: CH (occurrence: CH)
  Receive Date: 20191001
  Receipt Date: 20200813
  Transmission Date: 20201102
  Serious: Yes (Other)
  Sender: FDA-Public Use
  Company Number: CH-INCYTE CORPORATION-2018IN012507

PATIENT

DRUGS (4)
  1. JAKAVI [Suspect]
     Active Substance: RUXOLITINIB
     Dosage: 40 UKN, UNK
     Route: 048
     Dates: start: 20181218, end: 20190913
  2. JAKAVI [Suspect]
     Active Substance: RUXOLITINIB
     Dosage: 20 UKN, UNK
     Route: 048
     Dates: start: 20190914
  3. LITALIR [Concomitant]
     Active Substance: HYDROXYUREA
     Indication: POLYCYTHAEMIA VERA
     Dosage: UNK UKN, UNK (DOSE: 500)
     Route: 065
     Dates: start: 20131010, end: 20171207
  4. JAKAVI [Suspect]
     Active Substance: RUXOLITINIB
     Indication: POLYCYTHAEMIA VERA
     Dosage: 40 UKN, UNK
     Route: 048
     Dates: start: 20171207, end: 20180905

REACTIONS (8)
  - Fatigue [Recovered/Resolved]
  - Pruritus [Recovered/Resolved]
  - Paraesthesia [Recovered/Resolved]
  - Type 2 diabetes mellitus [Not Recovered/Not Resolved]
  - Rash erythematous [Recovered/Resolved]
  - Oedema peripheral [Not Recovered/Not Resolved]
  - Vertigo [Recovered/Resolved]
  - Xeroderma [Not Recovered/Not Resolved]

NARRATIVE: CASE EVENT DATE: 20180904
